FAERS Safety Report 5887032-1 (Version None)
Quarter: 2008Q3

REPORT INFORMATION
  Report Type: 
  Country: None (occurrence: None)
  Receive Date: 20080917
  Receipt Date: 20080905
  Transmission Date: 20090109
  Serious: Yes (Death, Hospitalization)
  Sender: FDA-Public Use
  Company Number: JP-PFIZER INC-2006076201

PATIENT
  Age: 67 Year
  Sex: Male
  Weight: 52 kg

DRUGS (6)
  1. VFEND [Suspect]
     Indication: ASPERGILLOSIS
     Dosage: DAILY DOSE:6MG/KG
     Route: 042
     Dates: start: 20060608, end: 20060608
  2. VFEND [Suspect]
     Dosage: DAILY DOSE:12MG/KG
     Route: 042
     Dates: start: 20060609, end: 20060609
  3. VFEND [Suspect]
     Dosage: DAILY DOSE:8MG/KG
     Route: 042
     Dates: start: 20060610, end: 20060612
  4. NEORAL [Suspect]
     Route: 048
     Dates: start: 20060408, end: 20060704
  5. COTRIM [Suspect]
     Route: 048
     Dates: start: 20060410, end: 20060704
  6. PREDONINE [Concomitant]
     Route: 048
     Dates: start: 20060417

REACTIONS (2)
  - DEATH [None]
  - THROMBOCYTOPENIA [None]
